FAERS Safety Report 21995818 (Version 1)
Quarter: 2023Q1

REPORT INFORMATION
  Report Type: Spontaneous
  Country: GB (occurrence: GB)
  Receive Date: 20230215
  Receipt Date: 20230215
  Transmission Date: 20230418
  Serious: Yes (Congenital Anomaly)
  Sender: FDA-Public Use
  Company Number: GB-MHRA-MED-202302081719409760-VWQKL

PATIENT
  Sex: Female
  Weight: 45 kg

DRUGS (4)
  1. REMICADE [Suspect]
     Active Substance: INFLIXIMAB
     Indication: Arthritis
     Dosage: 6MG PER KG
     Route: 041
  2. METHOTREXATE [Suspect]
     Active Substance: METHOTREXATE
     Indication: Arthritis
     Dosage: 10MG ORAL ONCE WEEKLY; ;
  3. FOLIC ACID [Concomitant]
     Active Substance: FOLIC ACID
     Indication: Adverse drug reaction
  4. OLOPATADINE [Concomitant]
     Active Substance: OLOPATADINE
     Indication: Adverse drug reaction

REACTIONS (1)
  - Abortion spontaneous [Recovering/Resolving]

NARRATIVE: CASE EVENT DATE: 20230208
